FAERS Safety Report 4321946-9 (Version None)
Quarter: 2004Q1

REPORT INFORMATION
  Report Type: 
  Country: None (occurrence: None)
  Receive Date: 20040323
  Receipt Date: 20040317
  Transmission Date: 20041129
  Serious: Yes (Other)
  Sender: FDA-Public Use
  Company Number: WAES 0403USA01582

PATIENT
  Age: 54 Year
  Sex: Male

DRUGS (5)
  1. TEGRETOL [Concomitant]
     Indication: CONVULSION
     Dates: start: 19840101
  2. ZETIA [Suspect]
     Indication: HYPERCHOLESTEROLAEMIA
     Route: 048
     Dates: start: 20030116
  3. IBUPROFEN [Concomitant]
  4. NIACIN [Concomitant]
     Indication: CONVULSION
     Dates: start: 19990101
  5. OMEGA-3 [Concomitant]

REACTIONS (1)
  - CONVULSION [None]
